FAERS Safety Report 9774427 (Version 1)
Quarter: 2013Q4

REPORT INFORMATION
  Report Type: Spontaneous
  Country: JP (occurrence: JP)
  Receive Date: 20131220
  Receipt Date: 20131220
  Transmission Date: 20140711
  Serious: Yes (Disabling)
  Sender: FDA-Public Use
  Company Number: JP-ELI_LILLY_AND_COMPANY-JP201312005607

PATIENT
  Age: 53 Year
  Sex: Male
  Weight: 38.6 kg

DRUGS (6)
  1. ZYPREXA [Suspect]
     Indication: SCHIZOPHRENIA
     Dosage: 20 MG, QD
     Route: 048
     Dates: end: 20131030
  2. BENZALIN                           /00036201/ [Concomitant]
     Dosage: UNK
     Route: 048
  3. SILECE [Concomitant]
     Dosage: UNK
     Route: 048
  4. LEVOTOMIN                          /00038602/ [Concomitant]
     Dosage: UNK
     Route: 048
  5. PURSENID [Concomitant]
     Dosage: UNK
     Route: 048
  6. MEROPENEM [Concomitant]
     Route: 048

REACTIONS (1)
  - Hypoglycaemia [Recovered/Resolved with Sequelae]
